FAERS Safety Report 20031317 (Version 1)
Quarter: 2021Q4

REPORT INFORMATION
  Report Type: Spontaneous
  Country: PT (occurrence: PT)
  Receive Date: 20211103
  Receipt Date: 20211103
  Transmission Date: 20220304
  Serious: Yes (Hospitalization)
  Sender: FDA-Public Use
  Company Number: PT-MYLANLABS-2021M1079323

PATIENT

DRUGS (2)
  1. ITRACONAZOLE [Suspect]
     Active Substance: ITRACONAZOLE
     Indication: Product used for unknown indication
     Dosage: UNK
  2. MICONAZOLE [Suspect]
     Active Substance: MICONAZOLE
     Indication: Product used for unknown indication
     Dosage: UNK

REACTIONS (3)
  - Acute kidney injury [Unknown]
  - Petechiae [Unknown]
  - Thrombocytopenia [Unknown]
